FAERS Safety Report 14294549 (Version 3)
Quarter: 2018Q2

REPORT INFORMATION
  Report Type: Report from Study
  Country: None (occurrence: US)
  Receive Date: 20171218
  Receipt Date: 20180424
  Transmission Date: 20180711
  Serious: Yes (Other)
  Sender: FDA-Public Use
  Company Number: US-ABBVIE-17K-163-2135371-00

PATIENT
  Age: 70 Year
  Sex: Female

DRUGS (2)
  1. HUMIRA [Suspect]
     Active Substance: ADALIMUMAB
     Indication: PSORIATIC ARTHROPATHY
     Route: 058
  2. HUMIRA [Suspect]
     Active Substance: ADALIMUMAB
     Indication: RHEUMATOID ARTHRITIS

REACTIONS (12)
  - Nodule [Unknown]
  - Pneumonia [Unknown]
  - Influenza [Unknown]
  - Bone pain [Not Recovered/Not Resolved]
  - Large intestinal haemorrhage [Not Recovered/Not Resolved]
  - Hypersensitivity [Unknown]
  - Bursitis [Recovering/Resolving]
  - Sensitivity to weather change [Recovering/Resolving]
  - Headache [Recovering/Resolving]
  - Musculoskeletal pain [Recovering/Resolving]
  - Haemobilia [Unknown]
  - Infectious colitis [Not Recovered/Not Resolved]

NARRATIVE: CASE EVENT DATE: 20170829
